FAERS Safety Report 4598364-1 (Version None)
Quarter: 2005Q1

REPORT INFORMATION
  Report Type: 
  Country: None (occurrence: None)
  Receive Date: 20050303
  Receipt Date: 20050303
  Transmission Date: 20050727
  Serious: Yes (Other)
  Sender: FDA-Public Use
  Company Number: None

PATIENT
  Sex: Male
  Weight: 80.5 kg

DRUGS (1)
  1. INTERFERON-ALPHA 9.0 U SC 3X / WEEK. CYCLE=4 WEEKS [Suspect]
     Indication: LYMPHADENOPATHY
     Dosage: 9.0 M U SC 3X/WEEK . CYCLE 4 WEEKS
     Route: 058
     Dates: start: 20041117

REACTIONS (4)
  - FATIGUE [None]
  - GASTROENTERITIS [None]
  - GASTROINTESTINAL HAEMORRHAGE [None]
  - IMPAIRED GASTRIC EMPTYING [None]
